FAERS Safety Report 10068724 (Version 1)
Quarter: 2014Q2

REPORT INFORMATION
  Report Type: Spontaneous
  Country: PT (occurrence: PT)
  Receive Date: 20140409
  Receipt Date: 20140409
  Transmission Date: 20141212
  Serious: Yes (Life-Threatening)
  Sender: FDA-Public Use
  Company Number: PT-ACTAVIS-2014-06600

PATIENT
  Age: 78 Year
  Sex: Male
  Weight: 70 kg

DRUGS (10)
  1. IRINOTECAN ACTAVIS [Suspect]
     Indication: PANCREATIC NEOPLASM
     Dosage: 140 MG/M2, 1/TWO WEEKS (EVERY 14 DAYS)
     Route: 040
     Dates: start: 20130311, end: 20140311
  2. OXALIPLATIN TEVA [Suspect]
     Indication: PANCREATIC CARCINOMA
     Dosage: 80 MG/M2, 1/TWO WEEKS (EVERY 14 DAYS)
     Route: 040
     Dates: start: 20130311, end: 20140311
  3. CALCIUM FOLINATE TEVA [Concomitant]
     Indication: PANCREATIC CARCINOMA
     Dosage: 520 MG, 1/TWO WEEKS (EVERY 14 DAYS); DRUG AS THE FOLFIRINOX CYCLE
     Route: 042
     Dates: start: 20140310
  4. FLUOROURACIL ACCORD [Concomitant]
     Indication: PANCREATIC CARCINOMA
     Dosage: 520 MG, 1/TWO WEEKS (EVERY 14 DAYS), DRUG AS THE FOLFIRINOX CYCLE
     Route: 042
     Dates: start: 20140310
  5. DEXAMETASONA                       /00016001/ [Concomitant]
     Indication: PROPHYLAXIS OF NAUSEA AND VOMITING
     Dosage: 20 MG, 1/TWO WEEKS (EVERY 14 DAYS)
     Route: 048
     Dates: start: 20140310
  6. GRANISETRON ACTAVIS [Concomitant]
     Indication: PROPHYLAXIS OF NAUSEA AND VOMITING
     Dosage: 2 MG, 1/TWO WEEKS (EVERY 14 DAYS)
     Route: 048
     Dates: start: 20140310
  7. TRIMETAZIDINA [Concomitant]
     Indication: PRODUCT USED FOR UNKNOWN INDICATION
     Dosage: 1 DF, DAILY
     Route: 048
  8. LISINOPRIL [Concomitant]
     Indication: HYPERTENSION
     Dosage: 1 DF, DAILY
     Route: 048
  9. OMEPRAZOL                          /00661201/ [Concomitant]
     Indication: PROPHYLAXIS
     Dosage: 1 DF, DAILY
     Route: 048
  10. ALPRAZOLAM [Concomitant]
     Indication: PRODUCT USED FOR UNKNOWN INDICATION
     Dosage: 1 DF, DAILY
     Route: 048

REACTIONS (4)
  - Speech disorder [Recovered/Resolved]
  - Oropharyngeal discomfort [Recovered/Resolved]
  - Erythema [Recovered/Resolved]
  - Off label use [Recovered/Resolved]
